FAERS Safety Report 11170071 (Version 1)
Quarter: 2015Q2

REPORT INFORMATION
  Report Type: Spontaneous
  Country: JP (occurrence: None)
  Receive Date: 20150604
  Receipt Date: 20150604
  Transmission Date: 20150821
  Serious: Yes (Other)
  Sender: FDA-Public Use
  Company Number: 2015HINLIT0472

PATIENT
  Age: 47 Year
  Sex: Female

DRUGS (1)
  1. LAMIVUDINE+ZIDOVUDINE+NEVIRAPINE (LAMIVUDINE, ZIDOVUDINE, NEVIRAPINE) [Suspect]
     Active Substance: LAMIVUDINE\NEVIRAPINE\ZIDOVUDINE
     Indication: ANTIRETROVIRAL THERAPY

REACTIONS (1)
  - Hyperlipidaemia [None]
